FAERS Safety Report 14289054 (Version 1)
Quarter: 2017Q4

REPORT INFORMATION
  Report Type: Spontaneous
  Country: JP (occurrence: JP)
  Receive Date: 20171214
  Receipt Date: 20171214
  Transmission Date: 20180321
  Serious: Yes (Death, Hospitalization, Other)
  Sender: FDA-Public Use
  Company Number: JP-PFIZER INC-2017532573

PATIENT
  Age: 65 Year
  Sex: Male

DRUGS (1)
  1. SUTENT [Suspect]
     Active Substance: SUNITINIB MALATE
     Indication: RENAL CELL CARCINOMA
     Dosage: 25 MG, CYCLIC (2 WEEK ON AND 1 WEEK OFF)
     Route: 048
     Dates: start: 20171027, end: 20171109

REACTIONS (5)
  - Multiple organ dysfunction syndrome [Fatal]
  - Acute kidney injury [Fatal]
  - Diarrhoea [Unknown]
  - Decreased appetite [Unknown]
  - Hyperkalaemia [Fatal]

NARRATIVE: CASE EVENT DATE: 20171106
